FAERS Safety Report 11800967 (Version 1)
Quarter: 2015Q4

REPORT INFORMATION
  Report Type: Report from Study
  Country: US (occurrence: US)
  Receive Date: 20151204
  Receipt Date: 20151204
  Transmission Date: 20160305
  Serious: No
  Sender: FDA-Public Use
  Company Number: US-ALEXION-A201504820

PATIENT
  Sex: Male

DRUGS (1)
  1. SOLIRIS [Suspect]
     Active Substance: ECULIZUMAB
     Indication: HAEMOLYTIC URAEMIC SYNDROME
     Route: 042

REACTIONS (10)
  - Neutrophil count decreased [Unknown]
  - Blood urea abnormal [Unknown]
  - Red blood cell count decreased [Unknown]
  - Eosinophil count increased [Unknown]
  - Haematocrit decreased [Unknown]
  - Hypoaesthesia [Unknown]
  - Monocyte count increased [Unknown]
  - Haemoglobin decreased [Unknown]
  - Pain in extremity [Unknown]
  - Blood creatinine abnormal [Unknown]
